FAERS Safety Report 18897904 (Version 1)
Quarter: 2021Q1

REPORT INFORMATION
  Report Type: Spontaneous
  Country: US (occurrence: US)
  Receive Date: 20210212
  Receipt Date: 20210212
  Transmission Date: 20210420
  Serious: Yes (Disabling)
  Sender: FDA-Public Use
  Company Number: None

PATIENT
  Age: 71 Year
  Sex: Female
  Weight: 129.6 kg

DRUGS (16)
  1. LEVOTHROXINE [Concomitant]
     Active Substance: LEVOTHYROXINE
  2. VITAMIN C [Concomitant]
     Active Substance: ASCORBIC ACID
  3. MAGNESIUM [Concomitant]
     Active Substance: MAGNESIUM
  4. AMIODARONE [Concomitant]
     Active Substance: AMIODARONE
  5. OMEGA?3 ACIDS [Concomitant]
     Active Substance: OMEGA-3 FATTY ACIDS
  6. PREDNISONE. [Concomitant]
     Active Substance: PREDNISONE
  7. OXYBUTYNIN. [Concomitant]
     Active Substance: OXYBUTYNIN CHLORIDE
  8. ANASTROZOLE 1MG [Suspect]
     Active Substance: ANASTROZOLE
     Indication: BREAST CANCER
     Route: 048
     Dates: start: 20200301, end: 20210104
  9. LOSARTAN. [Concomitant]
     Active Substance: LOSARTAN
  10. COMPELER MULTIVITAMIN CENTRUM SILVER [Concomitant]
  11. VITAMIN D3 [Concomitant]
     Active Substance: CHOLECALCIFEROL
  12. OSTEOBIFLEX [Concomitant]
  13. C0Q10 [Concomitant]
  14. METOPROLOL. [Concomitant]
     Active Substance: METOPROLOL
  15. ELIQUIS [Concomitant]
     Active Substance: APIXABAN
  16. ZINC. [Concomitant]
     Active Substance: ZINC

REACTIONS (1)
  - Carpal tunnel syndrome [None]

NARRATIVE: CASE EVENT DATE: 20201103
